FAERS Safety Report 5065814-6 (Version None)
Quarter: 2006Q3

REPORT INFORMATION
  Report Type: 
  Country: None (occurrence: None)
  Receive Date: 20060725
  Receipt Date: 20060718
  Transmission Date: 20061208
  Serious: Yes (Hospitalization)
  Sender: FDA-Public Use
  Company Number: HQWYE148219JUL06

PATIENT
  Age: 34 Year
  Sex: Male

DRUGS (8)
  1. MYLOTARG [Suspect]
     Indication: T-CELL TYPE ACUTE LEUKAEMIA
     Dosage: SEE IMAGE
     Route: 041
     Dates: start: 20060403, end: 20060403
  2. MYLOTARG [Suspect]
     Indication: T-CELL TYPE ACUTE LEUKAEMIA
     Dosage: SEE IMAGE
     Route: 041
     Dates: start: 20060509, end: 20060509
  3. ITRACONAZOLE [Concomitant]
  4. SULFAMETHOXAZOLE + TRIMETHOPRIM [Concomitant]
  5. NIZATIDINE [Concomitant]
  6. UNSPECIFIED CALCIUM SUPPLEMENT [Concomitant]
  7. BONALON (ALENDRONATE SODIUM) [Concomitant]
  8. ALFAROL (ALFACALCIDOL) [Concomitant]

REACTIONS (4)
  - NEUTROPENIA [None]
  - PLEURISY [None]
  - PNEUMONIA [None]
  - WEIGHT INCREASED [None]
